FAERS Safety Report 13413664 (Version 1)
Quarter: 2017Q2

REPORT INFORMATION
  Report Type: Spontaneous
  Country: RU (occurrence: RU)
  Receive Date: 20170407
  Receipt Date: 20170407
  Transmission Date: 20170830
  Serious: Yes (Other)
  Sender: FDA-Public Use
  Company Number: RU-ASTRAZENECA-2017SE34965

PATIENT
  Age: 68 Year
  Sex: Male
  Weight: 102 kg

DRUGS (9)
  1. ESSENTIALE FORTE [Concomitant]
  2. GALVUS MET [Concomitant]
     Active Substance: METFORMIN HYDROCHLORIDE\VILDAGLIPTIN
  3. CONCOR [Concomitant]
     Active Substance: BISOPROLOL FUMARATE
  4. ALOGLIPTIN. [Concomitant]
     Active Substance: ALOGLIPTIN
  5. CORDINORM [Concomitant]
  6. PLAVIX [Concomitant]
     Active Substance: CLOPIDOGREL BISULFATE
  7. AMPRILAN [Concomitant]
     Active Substance: RAMIPRIL
  8. AMARYL [Concomitant]
     Active Substance: GLIMEPIRIDE
  9. BRILINTA [Suspect]
     Active Substance: TICAGRELOR
     Indication: MYOCARDIAL INFARCTION
     Route: 048
     Dates: start: 201603

REACTIONS (1)
  - Hepatic neoplasm [Unknown]

NARRATIVE: CASE EVENT DATE: 201702
